FAERS Safety Report 13975367 (Version 2)
Quarter: 2018Q1

REPORT INFORMATION
  Report Type: Spontaneous
  Country: US (occurrence: US)
  Receive Date: 20170915
  Receipt Date: 20180216
  Transmission Date: 20180508
  Serious: Yes (Other)
  Sender: FDA-Public Use
  Company Number: US-PFIZER INC-2017394905

PATIENT
  Age: 69 Year
  Sex: Female
  Weight: 58.6 kg

DRUGS (12)
  1. IBRANCE [Suspect]
     Active Substance: PALBOCICLIB
     Dosage: 100 MG, CYCLIC, (DAILY FOR 3 WEEKS)
     Dates: start: 20170913
  2. LETROZOLE. [Concomitant]
     Active Substance: LETROZOLE
     Indication: BREAST CANCER METASTATIC
     Dosage: 25 MG, 1X/DAY (25MG BY MOUTH EVERY DAY ONCE)
     Route: 048
     Dates: start: 201704
  3. IBRANCE [Suspect]
     Active Substance: PALBOCICLIB
     Indication: BREAST CANCER METASTATIC
     Dosage: 125 MG, CYCLIC (125MG BY MOUTH ONCE DAILY FOR 21 DAYS, OFF 7 DAYS)
     Route: 048
     Dates: start: 201704, end: 20170815
  4. HERCEPTIN [Concomitant]
     Active Substance: TRASTUZUMAB
     Indication: BREAST CANCER METASTATIC
     Dosage: DOSE IS DETERMINED BY WEIGHT; DOSE HAS BEEN 400MG INFUSED EVERY 3 WEEKS
     Dates: start: 201008
  5. HERCEPTIN [Concomitant]
     Active Substance: TRASTUZUMAB
     Dosage: UNK, EVERY 3 WEEKS
     Dates: start: 201004
  6. IBRANCE [Suspect]
     Active Substance: PALBOCICLIB
     Dosage: 125 MG , CYCLIC, (DAILY FOR 3 WEEKS)
     Dates: start: 20170430, end: 20170907
  7. PERJETA [Concomitant]
     Active Substance: PERTUZUMAB
     Dosage: UNK, EVERY 3 WEEKS
     Dates: start: 201604
  8. ZOMETA [Concomitant]
     Active Substance: ZOLEDRONIC ACID
     Indication: BREAST CANCER METASTATIC
     Dosage: UNK
     Dates: start: 201008
  9. LETROZOLE. [Concomitant]
     Active Substance: LETROZOLE
     Dosage: 2.5 MG, DAILY
     Dates: start: 20170420
  10. PERJETA [Concomitant]
     Active Substance: PERTUZUMAB
     Indication: BREAST CANCER METASTATIC
     Dosage: INFUSION EVERY 3 WEEKS; DOSE UNKNOWN
     Dates: start: 201603
  11. ZOMETA [Concomitant]
     Active Substance: ZOLEDRONIC ACID
     Dosage: UNK, EVERY 12 WKS
     Dates: start: 201004
  12. FEMARA [Concomitant]
     Active Substance: LETROZOLE
     Indication: BREAST CANCER METASTATIC
     Dosage: 2.5 MG, DAILY
     Dates: start: 20170420

REACTIONS (2)
  - Neutropenia [Recovered/Resolved]
  - Asthenia [Unknown]

NARRATIVE: CASE EVENT DATE: 20170817
